FAERS Safety Report 7685859-7 (Version None)
Quarter: 2011Q3

REPORT INFORMATION
  Report Type: 
  Country: None (occurrence: None)
  Receive Date: 20110816
  Receipt Date: 20110811
  Transmission Date: 20111222
  Serious: Yes (Other)
  Sender: FDA-Public Use
  Company Number: FR-ROCHE-796474

PATIENT

DRUGS (1)
  1. BEVACIZUMAB [Suspect]
     Route: 065

REACTIONS (2)
  - CARDIAC DISORDER [None]
  - NEPHROPATHY [None]
